FAERS Safety Report 6408868-4 (Version None)
Quarter: 2009Q4

REPORT INFORMATION
  Report Type: 
  Country: None (occurrence: None)
  Receive Date: 20091019
  Receipt Date: 20091008
  Transmission Date: 20100525
  Serious: Yes (Hospitalization)
  Sender: FDA-Public Use
  Company Number: 8021393

PATIENT
  Age: 51 Year
  Sex: Female
  Weight: 69.3 kg

DRUGS (12)
  1. CDP870 [Suspect]
     Indication: CROHN'S DISEASE
     Dosage: 400 GM 1/2W SC
     Route: 058
     Dates: start: 20040604, end: 20040702
  2. CDP870 [Suspect]
     Indication: CROHN'S DISEASE
     Dosage: 400 MG /M SC
     Route: 058
     Dates: start: 20040730, end: 20040827
  3. CDP870 [Suspect]
     Indication: CROHN'S DISEASE
     Dosage: 400 MG 1/2W SC
     Route: 058
     Dates: start: 20040924, end: 20041022
  4. CDP870 [Suspect]
     Indication: CROHN'S DISEASE
     Dosage: 400 MG /M SC
     Route: 058
     Dates: start: 20041119, end: 20061120
  5. ASACOL [Concomitant]
  6. AROPAX [Concomitant]
  7. NEO-CYTAMEN [Concomitant]
  8. LEMNIS HC [Concomitant]
  9. ACETAMINOPHEN [Concomitant]
  10. DICLOFENAC [Concomitant]
  11. TRAMADOL HCL [Concomitant]
  12. TAMOXIFEN CITRATE [Concomitant]

REACTIONS (4)
  - BREAST ABSCESS [None]
  - BREAST CANCER STAGE II [None]
  - BREAST INFECTION [None]
  - MASTITIS [None]
